FAERS Safety Report 20227452 (Version 2)
Quarter: 2022Q1

REPORT INFORMATION
  Report Type: Spontaneous
  Country: US (occurrence: US)
  Receive Date: 20211224
  Receipt Date: 20220114
  Transmission Date: 20220423
  Serious: No
  Sender: FDA-Public Use
  Company Number: US-UNITED THERAPEUTICS-UNT-2021-019120

PATIENT
  Sex: Male
  Weight: 88.435 kg

DRUGS (5)
  1. REMODULIN [Suspect]
     Active Substance: TREPROSTINIL
     Indication: Pulmonary arterial hypertension
     Dosage: UNK, CONTINUING
     Route: 058
     Dates: start: 20210818
  2. REMODULIN [Suspect]
     Active Substance: TREPROSTINIL
     Dosage: 0.0722 ?G/KG, CONTINUING (PREFILLED WITH 3 ML PER CASSETTE; PUMP RATE OF 38 MCL PER HOUR)
     Route: 058
     Dates: start: 2021
  3. REMODULIN [Suspect]
     Active Substance: TREPROSTINIL
     Dosage: UNK UNK, CONTINUING
     Route: 058
     Dates: start: 2021
  4. OPSUMIT [Concomitant]
     Active Substance: MACITENTAN
     Indication: Pulmonary arterial hypertension
     Dosage: 10 MG, QD
     Route: 048
  5. TADALAFIL [Concomitant]
     Active Substance: TADALAFIL
     Indication: Product used for unknown indication
     Dosage: UNK
     Route: 065

REACTIONS (13)
  - Infusion site pain [Not Recovered/Not Resolved]
  - Infusion site discomfort [Recovered/Resolved]
  - Device adhesion issue [Recovered/Resolved]
  - Device malfunction [Unknown]
  - Device power source issue [Unknown]
  - Device failure [Unknown]
  - Device power source issue [Unknown]
  - Device leakage [Unknown]
  - Device power source issue [Unknown]
  - Device issue [Unknown]
  - Device failure [Unknown]
  - Device failure [Unknown]
  - Device issue [Unknown]

NARRATIVE: CASE EVENT DATE: 20210101
